FAERS Safety Report 16480006 (Version 23)
Quarter: 2020Q3

REPORT INFORMATION
  Report Type: Spontaneous
  Country: US (occurrence: US)
  Receive Date: 20190626
  Receipt Date: 20200825
  Transmission Date: 20201102
  Serious: Yes (Hospitalization)
  Sender: FDA-Public Use
  Company Number: US-ACTELION-A-NJ2019-192217

PATIENT
  Age: 40 Year
  Sex: Female
  Weight: 58.05 kg

DRUGS (64)
  1. VELETRI [Suspect]
     Active Substance: EPOPROSTENOL
     Dosage: 7 NG/KG, PER MIN
     Route: 042
     Dates: start: 20190517
  2. BUMEX [Concomitant]
     Active Substance: BUMETANIDE
     Dosage: 1 MG, BID
  3. ATIVAN [Concomitant]
     Active Substance: LORAZEPAM
     Indication: ANXIETY
     Dosage: 1 MG, Q 6 HOURS PRN
     Route: 048
  4. OXYGEN. [Concomitant]
     Active Substance: OXYGEN
     Indication: PULMONARY ARTERIAL HYPERTENSION
  5. KLOR?CON [Concomitant]
     Active Substance: POTASSIUM CHLORIDE
     Dosage: 20 MEQ, BID
     Route: 048
  6. ONDANSETRON [Concomitant]
     Active Substance: ONDANSETRON
     Dosage: 4 MG, Q6HRS
  7. BUMETANIDE. [Concomitant]
     Active Substance: BUMETANIDE
     Indication: PERIPHERAL SWELLING
     Dosage: 1 MG, QD
     Route: 048
  8. PROCHLORPERAZINE. [Concomitant]
     Active Substance: PROCHLORPERAZINE
     Indication: NAUSEA
     Dosage: 10 MG, EVERY 6 HRS
     Route: 048
  9. TRACLEER [Suspect]
     Active Substance: BOSENTAN
     Indication: PULMONARY ARTERIAL HYPERTENSION
     Dosage: 125 MG, BID
     Route: 048
     Dates: start: 20190509
  10. EPOPROSTENOL SODIUM. [Concomitant]
     Active Substance: EPOPROSTENOL SODIUM
     Dosage: 0.5 MG
     Route: 042
  11. REVATIO [Concomitant]
     Active Substance: SILDENAFIL CITRATE
     Indication: HYPOTENSION
     Dosage: 20 MG, TID
     Route: 048
  12. BUMEX [Concomitant]
     Active Substance: BUMETANIDE
     Dosage: 1 MG, QD
     Route: 048
  13. LANOXIN [Concomitant]
     Active Substance: DIGOXIN
     Dosage: 125 MCG, QD
     Route: 048
     Dates: start: 20190416
  14. NEURONTIN [Concomitant]
     Active Substance: GABAPENTIN
     Dosage: 200 MG, BID
  15. ATIVAN [Concomitant]
     Active Substance: LORAZEPAM
     Indication: SLEEP DISORDER
  16. OXYGEN. [Concomitant]
     Active Substance: OXYGEN
     Indication: COR PULMONALE ACUTE
     Dosage: 3?4 L PER NASAL CANNULA
     Route: 055
  17. COMPAZINE [Concomitant]
     Active Substance: PROCHLORPERAZINE MALEATE
     Indication: NAUSEA
     Dosage: 10 MG, PRN Q 6 HRS
     Route: 048
  18. ZOMETA [Concomitant]
     Active Substance: ZOLEDRONIC ACID
     Dosage: 4 MG/100 ML; INJECT 4 MG EVERY 3 MONTHS
     Route: 042
  19. PANTOPRAZOLE [Concomitant]
     Active Substance: PANTOPRAZOLE
     Indication: GASTROOESOPHAGEAL REFLUX DISEASE
     Dosage: 40 MG, QD
     Route: 048
  20. ALEVE PM [Concomitant]
     Active Substance: DIPHENHYDRAMINE HYDROCHLORIDE\NAPROXEN SODIUM
     Dosage: 220?25 MG, 2 TABLETS , QD
     Route: 048
  21. NEURONTIN [Concomitant]
     Active Substance: GABAPENTIN
     Dosage: 900 MG, TID
  22. PROTONIX [Concomitant]
     Active Substance: PANTOPRAZOLE SODIUM
     Dosage: 40 MG, QD
     Route: 048
  23. IMITREX [Concomitant]
     Active Substance: SUMATRIPTAN SUCCINATE
     Indication: MIGRAINE
     Dosage: 25 MG; 1 TAB Q2H IF NEEDED (MAX 4 TABS IN 24 HRS)
     Route: 048
  24. DIGOXIN. [Concomitant]
     Active Substance: DIGOXIN
     Indication: HYPOTENSION
     Dosage: 125 MCG, QD
     Dates: start: 20190416
  25. ROCEPHIN [Concomitant]
     Active Substance: CEFTRIAXONE SODIUM
  26. SCOPOLAMINE [Concomitant]
     Active Substance: SCOPOLAMINE
  27. HYDROMORPHONE [Concomitant]
     Active Substance: HYDROMORPHONE
     Indication: CANCER PAIN
     Dosage: 8 MG, 1TO 2 TABLETS EVERY 6HRS
     Route: 048
  28. QUETIAPINE. [Concomitant]
     Active Substance: QUETIAPINE
     Indication: INSOMNIA
     Dosage: 25 MG, PRN
     Route: 048
  29. VELETRI [Suspect]
     Active Substance: EPOPROSTENOL
     Dosage: 9 NG/KG, PER MIN
     Route: 042
     Dates: start: 20190517
  30. SYNTHROID [Concomitant]
     Active Substance: LEVOTHYROXINE SODIUM
     Dosage: 125 MCG, QD
     Route: 048
  31. ATIVAN [Concomitant]
     Active Substance: LORAZEPAM
     Indication: NAUSEA
  32. DOLOPHINE [Concomitant]
     Active Substance: METHADONE HYDROCHLORIDE
     Dosage: 20 MG, Q12HRS
     Route: 048
  33. ROBAXIN [Concomitant]
     Active Substance: METHOCARBAMOL
     Indication: MUSCLE SPASMS
     Dosage: 750 MG, PRN Q 6 HRS
     Route: 048
  34. SENOKOT?S [Concomitant]
     Active Substance: DOCUSATE SODIUM\SENNOSIDES
     Indication: CONSTIPATION
     Dosage: 8.6?50 MG, 2 TABLETS PRN QD
     Route: 048
  35. LEVOTHYROXIN [Concomitant]
     Active Substance: LEVOTHYROXINE
     Indication: HYPOTHYROIDISM
     Dosage: 125 MCG, QD
  36. PROVENTIL [Concomitant]
     Active Substance: ALBUTEROL
     Dosage: 2.5 MG
  37. ZOLPIDEM [Concomitant]
     Active Substance: ZOLPIDEM TARTRATE
     Indication: INSOMNIA
     Dosage: 5 MG, PRN
  38. ZOVIRAX [Concomitant]
     Active Substance: ACYCLOVIR
     Dosage: 200 MG, BID
     Route: 048
  39. ATIVAN [Concomitant]
     Active Substance: LORAZEPAM
     Indication: VOMITING
  40. TRASTUZUMAB. [Concomitant]
     Active Substance: TRASTUZUMAB
     Dosage: UNK, Q3WEEK
     Route: 042
  41. AMBIEN [Concomitant]
     Active Substance: ZOLPIDEM TARTRATE
     Indication: SLEEP DISORDER
     Dosage: 5 MG, PRN
     Route: 048
  42. HEPARIN [Concomitant]
     Active Substance: HEPARIN SODIUM
  43. ZOFRAN [Concomitant]
     Active Substance: ONDANSETRON HYDROCHLORIDE
  44. LEVOTHYROXINE. [Concomitant]
     Active Substance: LEVOTHYROXINE
     Dosage: 137 MCG, QD
     Route: 048
  45. SILDENAFIL. [Concomitant]
     Active Substance: SILDENAFIL
     Dosage: 20 MG, TID
     Route: 048
  46. VELETRI [Suspect]
     Active Substance: EPOPROSTENOL
     Indication: PULMONARY ARTERIAL HYPERTENSION
     Dosage: 11 NG/KG, PER MIN
     Route: 042
     Dates: start: 20190609
  47. REVATIO [Concomitant]
     Active Substance: SILDENAFIL CITRATE
     Indication: PULMONARY HYPERTENSION
  48. SEROQUEL [Concomitant]
     Active Substance: QUETIAPINE FUMARATE
     Indication: INSOMNIA
     Dosage: 25 MG, PRN
     Route: 048
  49. FOLIC ACID. [Concomitant]
     Active Substance: FOLIC ACID
     Dosage: 1 MG, QD
  50. METHADONE [Concomitant]
     Active Substance: METHADONE HYDROCHLORIDE
     Indication: CANCER PAIN
     Dosage: 10 MG, BID, EVERY 12 HOURS
     Route: 048
  51. DILAUDID [Concomitant]
     Active Substance: HYDROMORPHONE HYDROCHLORIDE
     Indication: PAIN
     Dosage: 4 MG TABLETS; 1?2 EVERY 6 HOURS AS NEEDED
     Route: 048
  52. MELATONIN [Concomitant]
     Active Substance: MELATONIN
     Indication: SLEEP DISORDER
     Dosage: 20 MG, PRN
     Route: 060
  53. COMPAZINE [Concomitant]
     Active Substance: PROCHLORPERAZINE MALEATE
     Indication: VOMITING
  54. CEFDINIR. [Concomitant]
     Active Substance: CEFDINIR
     Dosage: 300 MG
  55. HERCEPTIN [Concomitant]
     Active Substance: TRASTUZUMAB
     Route: 042
  56. LORAZEPAM. [Concomitant]
     Active Substance: LORAZEPAM
     Indication: NAUSEA
     Dosage: 1 MG, Q6HRS
     Route: 048
  57. DULOXETINE. [Concomitant]
     Active Substance: DULOXETINE
     Dosage: 60 MG, QD
     Route: 048
  58. GABAPENTIN. [Concomitant]
     Active Substance: GABAPENTIN
     Indication: NEURALGIA
     Dosage: 300 MG, TID
     Route: 048
  59. METHOCARBAMOL. [Concomitant]
     Active Substance: METHOCARBAMOL
     Indication: CANCER PAIN
     Dosage: 750 MG, EVERY 6 HOURS
     Route: 048
  60. HALDOL [Concomitant]
     Active Substance: HALOPERIDOL
     Indication: NAUSEA
     Dosage: 2 MG, PRN Q 6 HOURS UNDER THE TONGUE
     Route: 060
  61. OXYGEN. [Concomitant]
     Active Substance: OXYGEN
     Indication: PULMONARY EMBOLISM
     Dosage: 6?7 L PER NASAL CANNULA
     Route: 055
  62. MIRALAX [Concomitant]
     Active Substance: POLYETHYLENE GLYCOL 3350
     Dosage: 17 G; 1 PACKET 2 TIMES DAILY PRN
     Route: 048
  63. CYMBALTA [Concomitant]
     Active Substance: DULOXETINE HYDROCHLORIDE
     Dosage: 60 MG, QD
  64. SUMATRIPTAN. [Concomitant]
     Active Substance: SUMATRIPTAN
     Indication: MIGRAINE
     Dosage: 25 MG, PRN

REACTIONS (55)
  - Right ventricular failure [Unknown]
  - Red blood cell count decreased [Recovered/Resolved]
  - Blood creatine increased [Recovered/Resolved]
  - Platelet count decreased [Recovered/Resolved]
  - Catheter site rash [Unknown]
  - Device related infection [Recovered/Resolved]
  - White blood cell count decreased [Recovered/Resolved]
  - Pneumonia [Unknown]
  - Acute respiratory failure [Recovered/Resolved]
  - Septic pulmonary embolism [Unknown]
  - Metastases to bone [Unknown]
  - Oedema [Unknown]
  - Pain in extremity [Unknown]
  - Dyspnoea [Recovered/Resolved]
  - Pulmonary embolism [Unknown]
  - Arthralgia [Unknown]
  - Pulmonary arterial hypertension [Recovered/Resolved]
  - Condition aggravated [Recovered/Resolved]
  - Nausea [Recovering/Resolving]
  - Back pain [Recovered/Resolved]
  - Hypoxia [Unknown]
  - Staphylococcus test positive [Recovered/Resolved]
  - Cancer pain [Unknown]
  - Mental disorder [Recovered/Resolved]
  - Oxygen saturation decreased [Recovered/Resolved]
  - Oedema peripheral [Unknown]
  - Haematocrit decreased [Recovered/Resolved]
  - Haemoglobin decreased [Recovered/Resolved]
  - Transfusion [Recovered/Resolved]
  - Acute kidney injury [Recovered/Resolved]
  - Vomiting [Recovering/Resolving]
  - Asthenia [Unknown]
  - Metastases to liver [Recovering/Resolving]
  - Catheter management [Unknown]
  - Hypotension [Recovered/Resolved]
  - Troponin increased [Recovered/Resolved]
  - Fall [Recovered/Resolved]
  - Pulmonary hypertension [Unknown]
  - Lung infiltration [Unknown]
  - Fatigue [Unknown]
  - Metabolic acidosis [Recovered/Resolved]
  - Dehydration [Unknown]
  - Anaemia [Unknown]
  - Cor pulmonale [Unknown]
  - Weight increased [Unknown]
  - Hyperkalaemia [Recovered/Resolved]
  - Hyponatraemia [Unknown]
  - Staphylococcal sepsis [Recovered/Resolved]
  - Metastases to central nervous system [Unknown]
  - Syncope [Recovered/Resolved]
  - Thrombocytopenia [Recovered/Resolved]
  - Myocardial ischaemia [Recovered/Resolved]
  - Somnolence [Unknown]
  - Chest pain [Unknown]
  - Pleural effusion [Unknown]

NARRATIVE: CASE EVENT DATE: 20190609
